FAERS Safety Report 6676830-2 (Version None)
Quarter: 2010Q2

REPORT INFORMATION
  Report Type: 
  Country: None (occurrence: None)
  Receive Date: 20100412
  Receipt Date: 20100405
  Transmission Date: 20101027
  Serious: Yes (Death, Other)
  Sender: FDA-Public Use
  Company Number: FR-ROCHE-695620

PATIENT
  Age: 15 Year
  Sex: Female

DRUGS (7)
  1. GANCICLOVIR SODIUM [Suspect]
     Route: 065
  2. COTRIM [Suspect]
     Indication: DRUG USE FOR UNKNOWN INDICATION
     Route: 065
  3. ROXITHROMYCIN [Suspect]
     Indication: DRUG USE FOR UNKNOWN INDICATION
     Route: 065
  4. FOSCARNET [Concomitant]
  5. CEFTAZIDIME [Concomitant]
  6. VANCOMYCIN [Concomitant]
  7. METRONIDAZOLE [Concomitant]

REACTIONS (5)
  - ACUTE RESPIRATORY FAILURE [None]
  - CYTOMEGALOVIRUS INFECTION [None]
  - DEATH [None]
  - HEPATOTOXICITY [None]
  - PNEUMONIA TOXOPLASMAL [None]
